FAERS Safety Report 19585172 (Version 2)
Quarter: 2021Q3

REPORT INFORMATION
  Report Type: Spontaneous
  Country: BR (occurrence: BR)
  Receive Date: 20210720
  Receipt Date: 20210723
  Transmission Date: 20211014
  Serious: Yes (Other)
  Sender: FDA-Public Use
  Company Number: BR-GLAXOSMITHKLINE-BR2016GSK028605

PATIENT
  Age: 48 Year
  Sex: Female
  Weight: 63 kg

DRUGS (2)
  1. BENLYSTA [Suspect]
     Active Substance: BELIMUMAB
     Indication: SYSTEMIC LUPUS ERYTHEMATOSUS
     Dosage: 128 MG , EVERY 28 DAYS
     Route: 042
     Dates: start: 20160223, end: 202001
  2. ACLASTA (ZOLEDRONIC ACID) [Concomitant]
     Indication: PRODUCT USED FOR UNKNOWN INDICATION
     Dosage: UNK

REACTIONS (23)
  - Dyskinesia oesophageal [Unknown]
  - Oral discomfort [Recovered/Resolved]
  - Arthralgia [Not Recovered/Not Resolved]
  - Muscle fatigue [Unknown]
  - Patient isolation [Unknown]
  - Systemic lupus erythematosus [Not Recovered/Not Resolved]
  - Memory impairment [Not Recovered/Not Resolved]
  - Weight decreased [Not Recovered/Not Resolved]
  - Product dose omission issue [Not Recovered/Not Resolved]
  - Fatigue [Unknown]
  - Diarrhoea [Not Recovered/Not Resolved]
  - Inappropriate schedule of product administration [Recovered/Resolved]
  - Crying [Unknown]
  - Cough [Not Recovered/Not Resolved]
  - Hypothyroidism [Unknown]
  - Depressed mood [Unknown]
  - Nasopharyngitis [Not Recovered/Not Resolved]
  - Social problem [Unknown]
  - Asthenia [Not Recovered/Not Resolved]
  - Depression [Unknown]
  - Pain [Unknown]
  - Insomnia [Unknown]
  - Eating disorder [Unknown]

NARRATIVE: CASE EVENT DATE: 20160223
